FAERS Safety Report 15755186 (Version 1)
Quarter: 2018Q4

REPORT INFORMATION
  Report Type: Spontaneous
  Country: GB (occurrence: GB)
  Receive Date: 20181224
  Receipt Date: 20181224
  Transmission Date: 20190205
  Serious: Yes (Other)
  Sender: FDA-Public Use
  Company Number: GB-AUROBINDO-AUR-APL-2018-061484

PATIENT
  Age: 80 Year
  Sex: Female
  Weight: 66.22 kg

DRUGS (4)
  1. QUININE BISULFATE [Concomitant]
     Active Substance: QUININE BISULFATE
     Indication: PRODUCT USED FOR UNKNOWN INDICATION
     Dosage: UNK
     Route: 065
  2. CETIRIZINE FILM COATED TABLET [Suspect]
     Active Substance: CETIRIZINE HYDROCHLORIDE
     Indication: PRURITUS GENERALISED
     Dosage: 20 MILLIGRAM, ONCE A DAY
     Route: 048
     Dates: start: 20171206
  3. ESTRADERM [Concomitant]
     Active Substance: ESTRADIOL
     Indication: PRODUCT USED FOR UNKNOWN INDICATION
     Dosage: UNK
     Route: 065
  4. LOPERAMIDE [Concomitant]
     Active Substance: LOPERAMIDE
     Indication: PRODUCT USED FOR UNKNOWN INDICATION
     Dosage: UNK
     Route: 065

REACTIONS (1)
  - Micturition disorder [Recovered/Resolved]
